FAERS Safety Report 5312348-7 (Version None)
Quarter: 2007Q2

REPORT INFORMATION
  Report Type: 
  Country: None (occurrence: None)
  Receive Date: 20070430
  Receipt Date: 20061016
  Transmission Date: 20071010
  Serious: No
  Sender: FDA-Public Use
  Company Number: 2006UW19966

PATIENT
  Age: 73 Year
  Sex: Female
  Weight: 65.8 kg

DRUGS (3)
  1. NEXIUM [Suspect]
     Indication: GASTROOESOPHAGEAL REFLUX DISEASE
     Route: 048
     Dates: start: 20060601
  2. FOSAMAX [Concomitant]
  3. TOPROL-XL [Concomitant]

REACTIONS (4)
  - GAIT DISTURBANCE [None]
  - HAEMARTHROSIS [None]
  - JOINT STIFFNESS [None]
  - JOINT SWELLING [None]
